FAERS Safety Report 11681220 (Version 2)
Quarter: 2015Q4

REPORT INFORMATION
  Report Type: Spontaneous
  Country: US (occurrence: US)
  Receive Date: 20151027
  Receipt Date: 20151104
  Transmission Date: 20160304
  Serious: No
  Sender: FDA-Public Use
  Company Number: US-ELI_LILLY_AND_COMPANY-US201008000337

PATIENT
  Age: 56 Year
  Sex: Female

DRUGS (2)
  1. FORTEO [Suspect]
     Active Substance: TERIPARATIDE
     Dosage: 20 UG, QD
  2. FORTEO [Suspect]
     Active Substance: TERIPARATIDE
     Indication: OSTEOPOROSIS
     Dosage: 20 UG, DAILY (1/D)
     Route: 065
     Dates: start: 201005

REACTIONS (12)
  - Muscle spasms [Unknown]
  - Injection site pain [Unknown]
  - Injection site swelling [Unknown]
  - Dizziness [Unknown]
  - Pain in extremity [Not Recovered/Not Resolved]
  - Bone pain [Unknown]
  - Injection site erythema [Unknown]
  - Back pain [Not Recovered/Not Resolved]
  - Nausea [Unknown]
  - Injection site mass [Unknown]
  - Incorrect dose administered [Unknown]
  - Headache [Unknown]

NARRATIVE: CASE EVENT DATE: 20110626
